FAERS Safety Report 10170944 (Version 1)
Quarter: 2014Q2

REPORT INFORMATION
  Report Type: Spontaneous
  Country: US (occurrence: None)
  Receive Date: 20140513
  Receipt Date: 20140513
  Transmission Date: 20141212
  Serious: Yes (Hospitalization)
  Sender: FDA-Public Use
  Company Number: None

PATIENT
  Age: 61 Year
  Sex: Male
  Weight: 108.86 kg

DRUGS (4)
  1. TESTOSTERONE CYPIONATE [Suspect]
     Indication: BLOOD TESTOSTERONE DECREASED
     Dates: start: 20071218, end: 20140107
  2. LISONOPRIL [Concomitant]
  3. ZOCOR [Concomitant]
  4. ASPIRIN [Concomitant]

REACTIONS (22)
  - Myocardial infarction [None]
  - Lethargy [None]
  - Cardiac flutter [None]
  - Chest pain [None]
  - Temperature intolerance [None]
  - Insomnia [None]
  - Dyspnoea [None]
  - Hypophagia [None]
  - Weight decreased [None]
  - Feeling abnormal [None]
  - Malaise [None]
  - Nasopharyngitis [None]
  - Blood testosterone increased [None]
  - Blood testosterone decreased [None]
  - Haematocrit increased [None]
  - Haemoglobin increased [None]
  - Red blood cell count increased [None]
  - Polycythaemia [None]
  - Macular degeneration [None]
  - Condition aggravated [None]
  - Impaired work ability [None]
  - Overdose [None]
